FAERS Safety Report 9798458 (Version 2)
Quarter: 2014Q1

REPORT INFORMATION
  Report Type: Spontaneous
  Country: US (occurrence: US)
  Receive Date: 20140106
  Receipt Date: 20140130
  Transmission Date: 20141002
  Serious: No
  Sender: FDA-Public Use
  Company Number: US-VERTEX PHARMACEUTICALS INC-2013-012101

PATIENT
  Age: 43 Year
  Sex: Female
  Weight: 77 kg

DRUGS (11)
  1. INCIVEK [Suspect]
     Indication: HEPATITIS C
     Dosage: 750 MG, TID
     Route: 048
     Dates: start: 20131226
  2. RIBAVIRIN [Suspect]
     Indication: HEPATITIS C
     Dosage: 3 TABS IN AM AND 2 TABS AT HS
     Route: 048
     Dates: start: 20131226
  3. PEGASYS [Suspect]
     Indication: HEPATITIS C
     Dosage: 180 ?G, QW
     Route: 058
     Dates: start: 20131226
  4. NEXIUM [Concomitant]
  5. TRAZODONE [Concomitant]
  6. PROZAC [Concomitant]
  7. GLUMETZA [Concomitant]
  8. WELLBUTRIN [Concomitant]
  9. METHADONE [Concomitant]
  10. ABILIFY [Concomitant]
  11. ZYPREXA [Concomitant]

REACTIONS (3)
  - Postmenopausal haemorrhage [Recovered/Resolved]
  - Stress [Unknown]
  - Fatigue [Unknown]
